FAERS Safety Report 9464733 (Version 2)
Quarter: 2013Q3

REPORT INFORMATION
  Report Type: Spontaneous
  Country: US (occurrence: US)
  Receive Date: 20130819
  Receipt Date: 20130906
  Transmission Date: 20140515
  Serious: Yes (Death, Hospitalization)
  Sender: FDA-Public Use
  Company Number: US-GLAXOSMITHKLINE-A1037671A

PATIENT
  Age: 59 Year
  Sex: Female

DRUGS (9)
  1. TYKERB [Suspect]
     Indication: PRODUCT USED FOR UNKNOWN INDICATION
     Dosage: 1000MG PER DAY
     Route: 048
     Dates: start: 20130608
  2. SYNTHROID [Concomitant]
  3. DECADRON [Concomitant]
  4. ASPIRIN [Concomitant]
  5. AMBIEN [Concomitant]
  6. DIFLUCAN [Concomitant]
  7. LEXAPRO [Concomitant]
  8. NEXIUM [Concomitant]
  9. XANAX [Concomitant]

REACTIONS (2)
  - Death [Fatal]
  - Hospitalisation [Unknown]
